FAERS Safety Report 4799273-5 (Version None)
Quarter: 2005Q4

REPORT INFORMATION
  Report Type: 
  Country: None (occurrence: None)
  Receive Date: 20051013
  Receipt Date: 20050928
  Transmission Date: 20060501
  Serious: Yes (Life-Threatening, Hospitalization, Other)
  Sender: FDA-Public Use
  Company Number: 2005RL000129

PATIENT
  Age: 80 Year

DRUGS (1)
  1. PROPAFENONE HCL [Suspect]
     Dosage: 225 MG; TID; PO
     Route: 048

REACTIONS (8)
  - ACCIDENTAL POISONING [None]
  - ARTERIOSCLEROSIS CORONARY ARTERY [None]
  - ATRIOVENTRICULAR BLOCK [None]
  - CONVULSION [None]
  - DIARRHOEA [None]
  - HYPOTENSION [None]
  - MYOCARDIAL INFARCTION [None]
  - RENAL IMPAIRMENT [None]
